FAERS Safety Report 10229917 (Version 1)
Quarter: 2014Q2

REPORT INFORMATION
  Report Type: Spontaneous
  Country: US (occurrence: None)
  Receive Date: 20140610
  Receipt Date: 20140610
  Transmission Date: 20141212
  Serious: Yes (Hospitalization)
  Sender: FDA-Public Use
  Company Number: None

PATIENT
  Age: 63 Year
  Sex: Male

DRUGS (13)
  1. LUCENTIS [Suspect]
     Indication: DIABETIC RETINAL OEDEMA
     Dosage: 0.3 MG LUCENTIS?MONTHLY?INTRAVITREAL
     Route: 047
     Dates: start: 20140115, end: 20140507
  2. HUMULIN 70/30 [Concomitant]
  3. LABETALOL [Concomitant]
  4. FLOMAX [Concomitant]
  5. CYMBALTA [Concomitant]
  6. PLAVIX [Concomitant]
  7. LANTUS [Concomitant]
  8. ISOSORBIDE MONOITRATE [Concomitant]
  9. MEGA RED PLANT OMEGA [Concomitant]
  10. ECTOTRIN [Concomitant]
  11. LOSARTAN [Concomitant]
  12. PROTONIX [Concomitant]
  13. CRESTOR [Concomitant]

REACTIONS (2)
  - Hypertension [None]
  - Presyncope [None]
